FAERS Safety Report 8678918 (Version 3)
Quarter: 2012Q4

REPORT INFORMATION
  Report Type: 
  Country: JP (occurrence: JP)
  Receive Date: 20120723
  Receipt Date: 20120829
  Transmission Date: 20130627
  Serious: Yes (Hospitalization)
  Sender: FDA-Public Use
  Company Number: JP-GLAXOSMITHKLINE-B0816035A

PATIENT
  Age: 55 Year
  Sex: Male

DRUGS (3)
  1. FLUTICASONE PROPIONATE [Suspect]
     Indication: RHINITIS ALLERGIC
     Route: 045
  2. XYZAL [Concomitant]
     Indication: RHINITIS ALLERGIC
     Route: 048
  3. CELESTAMINE [Concomitant]
     Indication: RHINITIS ALLERGIC
     Route: 048

REACTIONS (6)
  - Nasal septum perforation [Recovering/Resolving]
  - Nasal inflammation [Unknown]
  - Nasal septum ulceration [Unknown]
  - Nasal septum disorder [Unknown]
  - Nasal mucosal disorder [Unknown]
  - Nasal congestion [Unknown]
